FAERS Safety Report 18273165 (Version 1)
Quarter: 2020Q3

REPORT INFORMATION
  Report Type: Spontaneous
  Country: CA (occurrence: CA)
  Receive Date: 20200916
  Receipt Date: 20200916
  Transmission Date: 20201103
  Serious: Yes (Hospitalization, Other)
  Sender: FDA-Public Use
  Company Number: CA-PFIZER INC-2020355119

PATIENT
  Age: 86 Year
  Sex: Female

DRUGS (2)
  1. FUROSEMIDE TEVA [Suspect]
     Active Substance: FUROSEMIDE
     Dosage: 20 MG, 1X/DAY
     Route: 048
  2. AMLODIPINE BESILATE [Suspect]
     Active Substance: AMLODIPINE BESYLATE
     Dosage: 0.5 DF, 1X/DAY
     Route: 048

REACTIONS (1)
  - Myocardial infarction [Unknown]
